FAERS Safety Report 8824045 (Version 4)
Quarter: 2013Q1

REPORT INFORMATION
  Report Type: Spontaneous
  Country: US (occurrence: US)
  Receive Date: 20121004
  Receipt Date: 20130312
  Transmission Date: 20140127
  Serious: Yes (Death, Life-Threatening, Disabling, Other)
  Sender: FDA-Public Use
  Company Number: US-MERCK-1210USA000199

PATIENT
  Age: 37 Year
  Sex: Female

DRUGS (5)
  1. SAPHRIS [Suspect]
     Indication: ANXIETY
     Dosage: UNK
     Route: 060
  2. SAPHRIS [Suspect]
     Indication: SLEEP DISORDER
  3. PAROXETINE [Concomitant]
     Dosage: 20 MG, QD
  4. LAMOTRIGINE [Concomitant]
     Dosage: 300 MG, QD
  5. CLONAZEPAM [Concomitant]
     Dosage: 3 MG, QD
     Route: 048

REACTIONS (9)
  - Death [Fatal]
  - Respiratory distress [Recovered/Resolved]
  - Obstructive airways disorder [Recovered/Resolved]
  - Pharyngeal oedema [Recovered/Resolved]
  - Incorrect route of drug administration [Unknown]
  - Underdose [Unknown]
  - Hypoaesthesia oral [Recovered/Resolved]
  - Pharyngeal hypoaesthesia [Recovered/Resolved]
  - Dysphagia [Recovered/Resolved]
